FAERS Safety Report 24375817 (Version 1)
Quarter: 2024Q3

REPORT INFORMATION
  Report Type: Spontaneous
  Country: PL (occurrence: PL)
  Receive Date: 20240928
  Receipt Date: 20240928
  Transmission Date: 20241016
  Serious: Yes (Life-Threatening, Hospitalization, Other)
  Sender: CELLTRION
  Company Number: None

PATIENT

DRUGS (3)
  1. INFLIXIMAB [Suspect]
     Active Substance: INFLIXIMAB
     Indication: Rheumatoid arthritis
     Dosage: 300 MG (DOSAGE TIME INTERVAL: AFTER 2 WEEKS AND AFTER 6 WEEKS; THIRD DOSE)
     Route: 042
     Dates: start: 20190621, end: 20190802
  2. CHLOROQUINE PHOSPHATE [Concomitant]
     Active Substance: CHLOROQUINE PHOSPHATE
     Indication: Rheumatoid arthritis
     Dosage: DOSAGE: UNKNOWN
     Route: 048
     Dates: start: 2013
  3. METEX [Concomitant]
     Indication: Rheumatoid arthritis
     Dosage: 25 MG, EVERY 1 WEEK
     Route: 058
     Dates: start: 2011

REACTIONS (4)
  - Cyanosis [Recovered/Resolved]
  - Blood pressure increased [Recovered/Resolved]
  - Bronchospasm [Recovered/Resolved]
  - Dyspnoea [Recovered/Resolved]

NARRATIVE: CASE EVENT DATE: 20190802
